FAERS Safety Report 19179231 (Version 1)
Quarter: 2021Q2

REPORT INFORMATION
  Report Type: Spontaneous
  Country: US (occurrence: US)
  Receive Date: 20210423
  Receipt Date: 20210423
  Transmission Date: 20210717
  Serious: Yes (Death)
  Sender: FDA-Public Use
  Company Number: None

PATIENT
  Sex: Male

DRUGS (6)
  1. ABIRATERONE ACETATE 250MG TAB [Suspect]
     Active Substance: ABIRATERONE ACETATE
     Indication: PROSTATE CANCER
     Route: 048
     Dates: start: 20200926
  2. CARVEDILOL. [Concomitant]
     Active Substance: CARVEDILOL
  3. ZARXIO [Concomitant]
     Active Substance: FILGRASTIM-SNDZ
  4. ASPIRIN. [Concomitant]
     Active Substance: ASPIRIN
  5. ISOSORB MONO [Concomitant]
     Active Substance: ISOSORBIDE MONONITRATE
  6. METFORMIN ER [Concomitant]
     Active Substance: METFORMIN HYDROCHLORIDE

REACTIONS (1)
  - Death [None]
